FAERS Safety Report 7346935-1 (Version None)
Quarter: 2011Q1

REPORT INFORMATION
  Report Type: 
  Country: None (occurrence: None)
  Receive Date: 20110311
  Receipt Date: 20110303
  Transmission Date: 20110831
  Serious: Yes (Other)
  Sender: FDA-Public Use
  Company Number: GB-ABBOTT-11P-167-0699799-00

PATIENT
  Sex: Female

DRUGS (2)
  1. ARCOXIA [Concomitant]
     Indication: ANKYLOSING SPONDYLITIS
     Route: 048
  2. HUMIRA [Suspect]
     Indication: ANKYLOSING SPONDYLITIS
     Route: 058
     Dates: start: 20101014

REACTIONS (4)
  - ONYCHOCLASIS [None]
  - INCORRECT DOSE ADMINISTERED [None]
  - WEIGHT INCREASED [None]
  - ALOPECIA [None]
